FAERS Safety Report 5058307-3 (Version None)
Quarter: 2006Q3

REPORT INFORMATION
  Report Type: 
  Country: None (occurrence: None)
  Receive Date: 20060721
  Receipt Date: 20060530
  Transmission Date: 20061208
  Serious: Yes (Hospitalization, Other)
  Sender: FDA-Public Use
  Company Number: PHEH2006US06993

PATIENT
  Age: 79 Year
  Sex: Male
  Weight: 72.562 kg

DRUGS (24)
  1. OCTREOTIDE ACETATE [Concomitant]
     Dosage: 20 UG, MONTHLY
     Dates: start: 20050701
  2. ALLOPURINOL [Concomitant]
     Dosage: 100 MG, DAILY
  3. ACETYLSALICYLIC ACID SRT [Concomitant]
     Dosage: 81 MG, DAILY
  4. GLIPIZIDE [Concomitant]
     Dosage: 5 MG, DAILY
  5. HYDROCHLOROTHIAZIDE [Concomitant]
     Dosage: 12.5 MG, DAILY
  6. METOPROLOL [Concomitant]
     Dosage: 25 MG, BID
  7. LOSARTAN POSTASSIUM [Concomitant]
     Dosage: 50 MG, DAILY
  8. SYNTHROID [Concomitant]
     Dosage: 0.175 MG, DAILY
  9. MULTIVITAMINS, COMBINATIONS [Concomitant]
  10. METFORMIN [Concomitant]
  11. PRILOSEC [Concomitant]
     Dosage: 20 MG, DAILY
  12. IRON SULFATETHIAMIN COMPOUND TAB [Concomitant]
     Dosage: 324 MG, BID
  13. QUININE SULFATE [Concomitant]
     Indication: MUSCLE SPASMS
     Dosage: 250 MG, HS PRN FOR LEG SPASM
  14. VITAMIN B-12 [Concomitant]
     Dosage: 100 UG, DAILY
  15. VICODIN [Concomitant]
     Indication: PAIN
     Dosage: 1 Q4HR PRN FOR PAIN
  16. PROTONIX [Concomitant]
     Dosage: 40MG QD
  17. ZOMETA [Suspect]
     Indication: METASTASES TO BONE
     Dosage: 4MG QMO
     Route: 042
     Dates: start: 20060104, end: 20060104
  18. ZOMETA [Suspect]
     Dosage: 4MG QMO
     Dates: start: 20060130, end: 20060130
  19. ZOMETA [Suspect]
     Dosage: 4MG QMO
     Dates: start: 20060228, end: 20060228
  20. ZOMETA [Suspect]
     Dosage: 4MG QMO
     Dates: start: 20060328, end: 20060328
  21. ZOMETA [Suspect]
     Dosage: 4MG QMO
     Dates: start: 20060425, end: 20060425
  22. ZOMETA [Suspect]
     Dosage: 4MG QMO
     Dates: start: 20060523, end: 20060523
  23. ZOMETA [Suspect]
     Dosage: 4 MG, ONCE/SINGLE
     Dates: start: 20051125, end: 20051125
  24. ZOMETA [Suspect]
     Dosage: 4 MG, ONCE/SINGLE
     Dates: start: 20050121, end: 20050121

REACTIONS (24)
  - ALANINE AMINOTRANSFERASE INCREASED [None]
  - ANOREXIA [None]
  - ASPARTATE AMINOTRANSFERASE INCREASED [None]
  - ASTHENIA [None]
  - BLOOD ALKALINE PHOSPHATASE INCREASED [None]
  - BLOOD BILIRUBIN INCREASED [None]
  - BLOOD CREATININE INCREASED [None]
  - CHEST PAIN [None]
  - CHILLS [None]
  - CHOLELITHIASIS [None]
  - CIRCULATORY COLLAPSE [None]
  - CONFUSIONAL STATE [None]
  - DEHYDRATION [None]
  - FALL [None]
  - FATIGUE [None]
  - HAEMATURIA [None]
  - INTERNATIONAL NORMALISED RATIO INCREASED [None]
  - LIVER FUNCTION TEST ABNORMAL [None]
  - METASTATIC NEOPLASM [None]
  - MYALGIA [None]
  - PYREXIA [None]
  - SEPSIS [None]
  - TENDERNESS [None]
  - TUMOUR NECROSIS [None]
